FAERS Safety Report 18219162 (Version 1)
Quarter: 2020Q3

REPORT INFORMATION
  Report Type: Spontaneous
  Country: US (occurrence: US)
  Receive Date: 20200901
  Receipt Date: 20200901
  Transmission Date: 20201103
  Serious: No
  Sender: FDA-Public Use
  Company Number: US-PFIZER INC-2020330637

PATIENT
  Age: 65 Year
  Sex: Female
  Weight: 89 kg

DRUGS (2)
  1. LYRICA [Suspect]
     Active Substance: PREGABALIN
     Indication: RHEUMATOID ARTHRITIS
     Dosage: 150 MG, 1X/DAY
     Route: 048
  2. LYRICA [Suspect]
     Active Substance: PREGABALIN
     Indication: FIBROMYALGIA
     Dosage: 150 MG, 3X/DAY (TAKE ONE CAPSULE PO (PER ORAL) TID (THREE TIMES A DAY)/150MG CAPSULE 3X DAILY)
     Route: 048

REACTIONS (13)
  - Myalgia [Not Recovered/Not Resolved]
  - Tremor [Recovered/Resolved]
  - Withdrawal syndrome [Not Recovered/Not Resolved]
  - Cough [Recovered/Resolved]
  - Nausea [Recovered/Resolved]
  - Product dose omission issue [Unknown]
  - Intentional product use issue [Unknown]
  - Feeling abnormal [Not Recovered/Not Resolved]
  - Musculoskeletal stiffness [Unknown]
  - Hyperhidrosis [Recovered/Resolved]
  - Vomiting [Recovered/Resolved with Sequelae]
  - Headache [Recovered/Resolved]
  - Dyspnoea [Recovered/Resolved]

NARRATIVE: CASE EVENT DATE: 202008
